FAERS Safety Report 9958370 (Version 2)
Quarter: 2014Q1

REPORT INFORMATION
  Report Type: Report from Study
  Country: DK (occurrence: DK)
  Receive Date: 20140305
  Receipt Date: 20140305
  Transmission Date: 20141002
  Serious: Yes (Hospitalization, Other)
  Sender: FDA-Public Use
  Company Number: DK-ABBVIE-10P-044-0676485-00

PATIENT
  Sex: Male
  Weight: 87.7 kg

DRUGS (2)
  1. HUMIRA 40 MG/ 0.8 ML PRE-FILLED SYRINGE [Suspect]
     Indication: COLITIS ULCERATIVE
  2. REMICADE [Suspect]
     Indication: COLITIS ULCERATIVE
     Route: 042
     Dates: start: 20100106, end: 20100110

REACTIONS (6)
  - Drug ineffective [Unknown]
  - Resection of rectum [Recovered/Resolved]
  - Pelvic pouch procedure [Recovered/Resolved]
  - Pelvic abscess [Recovered/Resolved]
  - Arthritis reactive [Unknown]
  - Abdominal abscess [Recovered/Resolved]
